FAERS Safety Report 6144529-7 (Version None)
Quarter: 2009Q2

REPORT INFORMATION
  Report Type: 
  Country: None (occurrence: None)
  Receive Date: 20090401
  Receipt Date: 20081201
  Transmission Date: 20091009
  Serious: Yes (Hospitalization)
  Sender: FDA-Public Use
  Company Number: 176553USA

PATIENT
  Age: 34 Year
  Sex: Female
  Weight: 70.3075 kg

DRUGS (1)
  1. LAMOTRIGINE [Suspect]
     Indication: BIPOLAR I DISORDER
     Dosage: 200 MG BID (20 MG, 2 IN 1 D), ORAL
     Route: 048
     Dates: start: 20030101

REACTIONS (1)
  - UNRESPONSIVE TO STIMULI [None]
